FAERS Safety Report 10995394 (Version 2)
Quarter: 2015Q2

REPORT INFORMATION
  Report Type: Report from Study
  Country: DE (occurrence: DE)
  Receive Date: 20150407
  Receipt Date: 20150427
  Transmission Date: 20150821
  Serious: Yes (Hospitalization, Other)
  Sender: FDA-Public Use
  Company Number: PHHY2015DE038081

PATIENT
  Age: 29 Year
  Sex: Male
  Weight: 79 kg

DRUGS (6)
  1. GENERIC CARBAMAZEPINE [Suspect]
     Active Substance: CARBAMAZEPINE
     Dosage: UKN (OVERDOSING INTENT)
     Route: 048
     Dates: start: 20140621
  2. LACOSAMIDE [Suspect]
     Active Substance: LACOSAMIDE
     Dosage: (DOSE REDUCED)
     Route: 048
     Dates: start: 20140623
  3. LACOSAMIDE [Suspect]
     Active Substance: LACOSAMIDE
     Indication: EPILEPSY
     Dosage: UNK
     Route: 048
     Dates: start: 20131217
  4. GENERIC CARBAMAZEPINE [Suspect]
     Active Substance: CARBAMAZEPINE
     Dosage: (DOSE REDUCED)
     Route: 048
     Dates: start: 20140623
  5. LACOSAMIDE [Suspect]
     Active Substance: LACOSAMIDE
     Dosage: UNK (OVERDOSING INTENT)
     Route: 048
     Dates: start: 20140621
  6. GENERIC CARBAMAZEPINE [Suspect]
     Active Substance: CARBAMAZEPINE
     Indication: EPILEPSY
     Dosage: (400 TO 1200MG), QD
     Route: 048
     Dates: start: 20131217

REACTIONS (4)
  - Toxicity to various agents [Recovered/Resolved]
  - Suicidal ideation [Recovered/Resolved]
  - Suicide attempt [Recovered/Resolved]
  - Intentional overdose [Recovered/Resolved]

NARRATIVE: CASE EVENT DATE: 20140621
